FAERS Safety Report 9693333 (Version 2)
Quarter: 2014Q1

REPORT INFORMATION
  Report Type: Spontaneous
  Country: US (occurrence: None)
  Receive Date: 20131114
  Receipt Date: 20140325
  Transmission Date: 20141002
  Serious: Yes (Other)
  Sender: FDA-Public Use
  Company Number: 2013-US-002732

PATIENT
  Age: 48 Year
  Sex: Female
  Weight: 68.9 kg

DRUGS (18)
  1. XYREM [Suspect]
     Indication: WAXY FLEXIBILITY
     Route: 048
     Dates: start: 20130831, end: 2013
  2. XYREM [Suspect]
     Indication: NARCOLEPSY
     Route: 048
     Dates: start: 20130831, end: 2013
  3. ADVAIR(FLUTICASONE PROPIONATE, SALMETEROL XINAFOATE) [Concomitant]
  4. COMBIVENT(IPRATROPIM BROMIDE, SALBUTAMOL SULFATE) [Concomitant]
  5. TOPAMAX(TOPIRAMATE) [Concomitant]
  6. SUMATRIPTAN(SUMATRIPTAN SUCCINATE) [Concomitant]
  7. ABILIFY(ARIPIPRAZOLE) [Concomitant]
  8. KLONOPIN(CLONAZEPAM) [Concomitant]
  9. REGLAN(METOCLOPRAMIDE HYDROCHLORIDE) [Concomitant]
  10. CARAFATE(SUCRALFATE) [Concomitant]
  11. DEXILANT (DEXLANSOPRAZOLE) [Concomitant]
  12. FUROSEMIDE(FUROSEMIDE) [Concomitant]
  13. OXYCONTIN(OXYCODONE HYDROCHLORIDE) [Concomitant]
  14. GABAPENTIN(GABAPENTIN) [Concomitant]
  15. DILAUDID(HYDROMORPHONE HYDROCHLORIDE) [Concomitant]
  16. BACLOFEN(BACLOFEN) [Concomitant]
  17. ADDERALL [Concomitant]
  18. NUVIGIL [Concomitant]

REACTIONS (3)
  - Sleep apnoea syndrome [None]
  - Somnambulism [None]
  - Abnormal sleep-related event [None]
